FAERS Safety Report 9508186 (Version 1)
Quarter: 2013Q3

REPORT INFORMATION
  Report Type: Spontaneous
  Country: CA (occurrence: None)
  Receive Date: 20130906
  Receipt Date: 20130906
  Transmission Date: 20140515
  Serious: Yes (Hospitalization)
  Sender: FDA-Public Use
  Company Number: None

PATIENT
  Age: 35 Year
  Sex: Male
  Weight: 58 kg

DRUGS (1)
  1. CISPLATIN [Suspect]

REACTIONS (3)
  - Pyrexia [None]
  - Mucosal inflammation [None]
  - Aphagia [None]
